FAERS Safety Report 5873710-7 (Version None)
Quarter: 2008Q3

REPORT INFORMATION
  Report Type: 
  Country: None (occurrence: None)
  Receive Date: 20080908
  Receipt Date: 20080829
  Transmission Date: 20090109
  Serious: Yes (Hospitalization)
  Sender: FDA-Public Use
  Company Number: BR-ABBOTT-08P-020-0473603-00

PATIENT
  Sex: Male
  Weight: 71 kg

DRUGS (2)
  1. RITONAVIR SOFT GELATIN CAPSULES [Suspect]
     Indication: HIV INFECTION
     Route: 048
     Dates: start: 20080721
  2. TMC-114 [Concomitant]
     Indication: HIV INFECTION
     Route: 048
     Dates: start: 20080818

REACTIONS (1)
  - CALCULUS URINARY [None]
